FAERS Safety Report 13336098 (Version 11)
Quarter: 2018Q2

REPORT INFORMATION
  Report Type: Report from Study
  Country: US (occurrence: US)
  Receive Date: 20170315
  Receipt Date: 20180516
  Transmission Date: 20180711
  Serious: No
  Sender: FDA-Public Use
  Company Number: US-ALEXION PHARMACEUTICALS INC.-A201702353

PATIENT
  Sex: Female

DRUGS (2)
  1. STRENSIQ [Suspect]
     Active Substance: ASFOTASE ALFA
     Indication: HYPOPHOSPHATASIA
     Dosage: 2 MG/KG, TIW
     Route: 058
     Dates: start: 20170216, end: 20170623
  2. STRENSIQ [Suspect]
     Active Substance: ASFOTASE ALFA
     Dosage: UNK
     Route: 058

REACTIONS (46)
  - Aptyalism [Unknown]
  - Viral infection [Unknown]
  - Dysphagia [Unknown]
  - Pain [Unknown]
  - Lip exfoliation [Unknown]
  - Hypoaesthesia teeth [Unknown]
  - Hypoaesthesia oral [Unknown]
  - Speech disorder [Unknown]
  - Insomnia [Unknown]
  - Glossodynia [Unknown]
  - Lip dry [Unknown]
  - Crepitations [Unknown]
  - Sinus disorder [Unknown]
  - Dental plaque [Unknown]
  - Headache [Unknown]
  - Pharyngitis [Unknown]
  - Superficial injury of eye [Unknown]
  - Rhinalgia [Unknown]
  - Sneezing [Unknown]
  - Hypophagia [Unknown]
  - Pain in extremity [Unknown]
  - Tongue discomfort [Unknown]
  - Bone disorder [Unknown]
  - Blood alkaline phosphatase abnormal [Unknown]
  - Dry mouth [Unknown]
  - Tooth socket haemorrhage [Unknown]
  - Neuropathy peripheral [Unknown]
  - Gingivitis [Unknown]
  - Tooth disorder [Unknown]
  - Jaw disorder [Unknown]
  - Dry eye [Unknown]
  - Bone pain [Unknown]
  - Rhinorrhoea [Unknown]
  - Nerve injury [Unknown]
  - Oral pain [Unknown]
  - Gingival swelling [Unknown]
  - Oral discomfort [Unknown]
  - Eating disorder [Unknown]
  - Back pain [Unknown]
  - Pain in jaw [Unknown]
  - Arthropathy [Unknown]
  - Gingival pain [Unknown]
  - Stomatitis [Unknown]
  - Dry skin [Unknown]
  - Throat irritation [Unknown]
  - Toothache [Unknown]
